FAERS Safety Report 9898371 (Version 1)
Quarter: 2014Q1

REPORT INFORMATION
  Report Type: Spontaneous
  Country: US (occurrence: US)
  Receive Date: 20140214
  Receipt Date: 20140214
  Transmission Date: 20141002
  Serious: Yes (Life-Threatening, Hospitalization)
  Sender: FDA-Public Use
  Company Number: US-B.I. PHARMACEUTICALS,INC./RIDGEFIELD-2014-BI-06015GD

PATIENT
  Age: 80 Year
  Sex: Female

DRUGS (3)
  1. BISACODYL [Suspect]
     Indication: BOWEL PREPARATION
  2. VENLAFAXINE [Suspect]
     Indication: DEPRESSION
  3. ATORVASTATIN [Concomitant]
     Indication: HYPERLIPIDAEMIA

REACTIONS (3)
  - Grand mal convulsion [Recovered/Resolved]
  - Hyponatraemia [Recovered/Resolved]
  - Unresponsive to stimuli [Recovered/Resolved]
